FAERS Safety Report 8082504-6 (Version None)
Quarter: 2012Q1

REPORT INFORMATION
  Report Type: 
  Country: None (occurrence: None)
  Receive Date: 20120127
  Receipt Date: 20110217
  Transmission Date: 20120608
  Serious: No
  Sender: FDA-Public Use
  Company Number: US-ABBOTT-11P-163-0706699-00

PATIENT
  Sex: Male
  Weight: 74.91 kg

DRUGS (1)
  1. HUMIRA [Suspect]
     Indication: ANKYLOSING SPONDYLITIS
     Dates: start: 20070101

REACTIONS (3)
  - AORTIC VALVE INCOMPETENCE [None]
  - GASTROENTERITIS EOSINOPHILIC [None]
  - EOSINOPHIL COUNT INCREASED [None]
